FAERS Safety Report 13551744 (Version 1)
Quarter: 2017Q2

REPORT INFORMATION
  Report Type: Spontaneous
  Country: US (occurrence: US)
  Receive Date: 20170516
  Receipt Date: 20170516
  Transmission Date: 20170830
  Serious: Yes (Other)
  Sender: FDA-Public Use
  Company Number: US-PFIZER INC-2017211222

PATIENT
  Sex: Female

DRUGS (1)
  1. XELJANZ [Suspect]
     Active Substance: TOFACITINIB CITRATE
     Dosage: 5 MG, UNK

REACTIONS (13)
  - Cough [Unknown]
  - Oropharyngeal pain [Unknown]
  - Musculoskeletal stiffness [Unknown]
  - Ulcerative keratitis [Unknown]
  - Pain [Unknown]
  - Wheezing [Unknown]
  - Heart rate irregular [Unknown]
  - Joint swelling [Unknown]
  - Palpitations [Unknown]
  - Dry eye [Unknown]
  - Back pain [Unknown]
  - Infection [Unknown]
  - Dyspepsia [Unknown]
